FAERS Safety Report 7737130-2 (Version None)
Quarter: 2011Q3

REPORT INFORMATION
  Report Type: 
  Country: None (occurrence: None)
  Receive Date: 20110908
  Receipt Date: 20110908
  Transmission Date: 20111222
  Serious: No
  Sender: FDA-Public Use
  Company Number: None

PATIENT

DRUGS (1)
  1. AVASTIN [Suspect]
     Route: 047
     Dates: start: 20110106

REACTIONS (3)
  - OFF LABEL USE [None]
  - VISION BLURRED [None]
  - BLINDNESS [None]
